FAERS Safety Report 21836221 (Version 1)
Quarter: 2023Q1

REPORT INFORMATION
  Report Type: Report from Study
  Country: US (occurrence: US)
  Receive Date: 20230109
  Receipt Date: 20230109
  Transmission Date: 20230417
  Serious: Yes (Other)
  Sender: FDA-Public Use
  Company Number: US-UCBSA-2023000574

PATIENT
  Sex: Female

DRUGS (2)
  1. CERTOLIZUMAB PEGOL [Suspect]
     Active Substance: CERTOLIZUMAB PEGOL
     Indication: Rheumatoid arthritis
     Dosage: UNK
     Dates: start: 20221011
  2. TRAMADOL [Suspect]
     Active Substance: TRAMADOL
     Indication: Product used for unknown indication
     Dosage: UNK

REACTIONS (6)
  - Rheumatoid arthritis [Not Recovered/Not Resolved]
  - Venous injury [Recovering/Resolving]
  - Venous operation [Recovering/Resolving]
  - Swollen tongue [Not Recovered/Not Resolved]
  - Dysphagia [Not Recovered/Not Resolved]
  - Insomnia [Not Recovered/Not Resolved]
